FAERS Safety Report 6476003-2 (Version None)
Quarter: 2009Q4

REPORT INFORMATION
  Report Type: 
  Country: None (occurrence: None)
  Receive Date: 20091204
  Receipt Date: 20091123
  Transmission Date: 20100525
  Serious: Yes (Hospitalization, Other)
  Sender: FDA-Public Use
  Company Number: FR-ELI_LILLY_AND_COMPANY-FR200909005837

PATIENT
  Sex: Male
  Weight: 73 kg

DRUGS (7)
  1. ALIMTA [Suspect]
     Indication: LUNG ADENOCARCINOMA
     Dosage: 500 MG/M2, EVERY 3 WEEKS
     Route: 042
     Dates: start: 20081101, end: 20090601
  2. ALIMTA [Suspect]
     Dosage: UNK, EVERY 3 WEEKS
     Route: 042
     Dates: start: 20090601, end: 20090809
  3. FOLIC ACID [Concomitant]
     Indication: VITAMIN SUPPLEMENTATION
     Dosage: 0.4 MG, DAILY (1/D)
     Dates: start: 20080901
  4. VITAMIN B-12 [Concomitant]
     Indication: VITAMIN SUPPLEMENTATION
     Dosage: UNK, UNKNOWN
     Route: 065
     Dates: start: 20080901
  5. CORTICOSTEROIDS [Concomitant]
     Indication: PROPHYLAXIS
     Dosage: UNK, UNKNOWN
     Route: 065
     Dates: start: 20080901
  6. DIAMICRON [Concomitant]
     Indication: DIABETES MELLITUS
     Dosage: 80 MG, 3/D
     Route: 048
  7. NEXIUM [Concomitant]
     Dosage: 20 MG, DAILY (1/D)
     Route: 065

REACTIONS (10)
  - ANAEMIA [None]
  - CHOLESTASIS [None]
  - CONJUNCTIVITIS [None]
  - DERMATITIS [None]
  - DIABETES MELLITUS [None]
  - GENERALISED OEDEMA [None]
  - HYPOCHOLESTEROLAEMIA [None]
  - HYPOPROTEINAEMIA [None]
  - PYREXIA [None]
  - SCLERODERMA [None]
